FAERS Safety Report 7064580-2 (Version None)
Quarter: 2010Q4

REPORT INFORMATION
  Report Type: 
  Country: None (occurrence: None)
  Receive Date: 20101022
  Receipt Date: 20101022
  Transmission Date: 20110411
  Serious: Yes (Other)
  Sender: FDA-Public Use
  Company Number: None

PATIENT
  Sex: Female

DRUGS (2)
  1. TUSSIONEX [Suspect]
     Indication: SINUS DISORDER
     Dosage: 1 TSP PO - BID
     Route: 048
     Dates: start: 20100917, end: 20100921
  2. CEPHALEXIN [Suspect]
     Indication: SINUS DISORDER
     Dosage: 500 MG Q 12 HRS PO
     Route: 048
     Dates: start: 20100917, end: 20100921

REACTIONS (3)
  - DIZZINESS [None]
  - IMPAIRED DRIVING ABILITY [None]
  - LOSS OF CONSCIOUSNESS [None]
